FAERS Safety Report 8465646-2 (Version None)
Quarter: 2012Q2

REPORT INFORMATION
  Report Type: 
  Country: None (occurrence: None)
  Receive Date: 20120621
  Receipt Date: 20120621
  Transmission Date: 20120825
  Serious: Yes (Hospitalization)
  Sender: FDA-Public Use
  Company Number: None

PATIENT
  Sex: Female
  Weight: 103.6 kg

DRUGS (5)
  1. CYCLOPHOSPHAMIDE [Suspect]
     Dosage: 535 MG
     Dates: end: 20120203
  2. RITUXIMAB (MOAB C2B8 ANTI CD20, CHIMERIC) [Suspect]
     Dosage: 1070 MG
  3. LORATADINE [Concomitant]
  4. FLUDARABINE PHOSPHATE [Suspect]
     Dosage: 53.5 MG
  5. ORTHO-TRICYCLEN BIRTH CONTROL PILLS [Concomitant]

REACTIONS (5)
  - OXYGEN SATURATION DECREASED [None]
  - CHEST X-RAY ABNORMAL [None]
  - DYSPNOEA EXERTIONAL [None]
  - PYREXIA [None]
  - FUNGAL TEST POSITIVE [None]
